FAERS Safety Report 6467922-1 (Version None)
Quarter: 2009Q4

REPORT INFORMATION
  Report Type: 
  Country: None (occurrence: None)
  Receive Date: 20091127
  Receipt Date: 20091111
  Transmission Date: 20100525
  Serious: Yes (Hospitalization)
  Sender: FDA-Public Use
  Company Number: ACO_00609_2009

PATIENT
  Age: 28 Year
  Sex: Male

DRUGS (2)
  1. SIRDALUD  (SIRDALUD-TIZANIDINE HYDROCHLORIDE) [Suspect]
     Indication: DRUG USE FOR UNKNOWN INDICATION
     Dosage: (2 MG)
     Dates: start: 20090901, end: 20090901
  2. DEXAMETHASONE SODIUM PHOSPHATE [Concomitant]

REACTIONS (3)
  - AREFLEXIA [None]
  - PARALYSIS FLACCID [None]
  - RESPIRATORY ARREST [None]
